FAERS Safety Report 9535808 (Version 2)
Quarter: 2014Q1

REPORT INFORMATION
  Report Type: Report from Study
  Country: US (occurrence: US)
  Receive Date: 20130919
  Receipt Date: 20140319
  Transmission Date: 20141002
  Serious: Yes (Hospitalization, Other)
  Sender: FDA-Public Use
  Company Number: US-BRISTOL-MYERS SQUIBB COMPANY-19389659

PATIENT
  Age: 65 Year
  Sex: Male
  Weight: 71.8 kg

DRUGS (7)
  1. DENENICOKIN [Suspect]
     Indication: METASTATIC MALIGNANT MELANOMA
     Dosage: INTON 30AUG2013, NO OF DOSES:14?1ST 3 DOSES IN MAY13:150MCG/KG(7090MCG)?REMAINING DOSES:100MCG/KG
     Route: 042
     Dates: start: 20130515
  2. IPILIMUMAB [Suspect]
     Indication: METASTATIC MALIGNANT MELANOMA
     Dosage: INTERRUPTED ON 23AUG2013?NO OF DOSE:4?DOSE VALUE:212.7MG
     Route: 042
     Dates: start: 20130605
  3. ADVIL [Concomitant]
  4. HYDROXYZINE [Concomitant]
  5. LEVOFLOXACIN [Concomitant]
  6. PROMETHAZINE [Concomitant]
  7. ZANTAC [Concomitant]

REACTIONS (3)
  - Febrile neutropenia [Recovered/Resolved with Sequelae]
  - Pneumonia [Recovered/Resolved]
  - Hypophysitis [Recovered/Resolved with Sequelae]
